FAERS Safety Report 7633326-9 (Version None)
Quarter: 2011Q3

REPORT INFORMATION
  Report Type: 
  Country: None (occurrence: None)
  Receive Date: 20110725
  Receipt Date: 20100630
  Transmission Date: 20111222
  Serious: Yes (Other)
  Sender: FDA-Public Use
  Company Number: US-BRISTOL-MYERS SQUIBB COMPANY-15173990

PATIENT

DRUGS (2)
  1. GLEEVEC [Suspect]
     Dosage: 1DF=300/DAY
  2. SPRYCEL [Suspect]
     Dosage: 1 DF: 70MG/DAY OR 70 MG QOD.

REACTIONS (1)
  - BONE MARROW FAILURE [None]
